FAERS Safety Report 7415505-9 (Version None)
Quarter: 2011Q2

REPORT INFORMATION
  Report Type: 
  Country: None (occurrence: None)
  Receive Date: 20110414
  Receipt Date: 20110404
  Transmission Date: 20111010
  Serious: Yes (Hospitalization)
  Sender: FDA-Public Use
  Company Number: JP-MPIJNJ-2011-01438

PATIENT

DRUGS (11)
  1. ZYLORIC                            /00003301/ [Concomitant]
     Indication: HYPERURICAEMIA
     Dosage: 100 MG, QD
     Route: 048
  2. TAMSULOSIN HCL [Concomitant]
     Indication: BENIGN PROSTATIC HYPERPLASIA
     Dosage: 0.2 MG, QD
     Route: 048
  3. VELCADE [Suspect]
     Indication: MULTIPLE MYELOMA
     Dosage: 1.0 MG/M2, UNK
     Route: 042
     Dates: start: 20110314
  4. DEXAMETHASONE [Suspect]
     Indication: MULTIPLE MYELOMA
     Dosage: 20 MG, QD
     Route: 048
     Dates: start: 20110314
  5. MS CONTIN [Concomitant]
     Indication: CANCER PAIN
     Dosage: 30 MG, QD
     Route: 048
  6. OMEPRAZOLE [Concomitant]
     Indication: PROPHYLAXIS AGAINST GASTROINTESTINAL ULCER
     Dosage: 20 MG, QD
     Route: 048
  7. SENNOSIDE                          /00571902/ [Concomitant]
     Indication: CONSTIPATION
     Dosage: UNK
     Route: 048
  8. LENDORMIN [Concomitant]
     Indication: INSOMNIA
     Dosage: 0.25 MG, QD
     Route: 048
  9. AMLODIPINE [Concomitant]
     Indication: HYPERTENSION
     Dosage: 5 MG, QD
     Route: 048
  10. SODIUM PICOSULFATE [Concomitant]
     Indication: CONSTIPATION
     Dosage: UNK
     Route: 048
  11. DEXAMETHASONE [Suspect]
     Dosage: 10 MG, QD
     Route: 048

REACTIONS (2)
  - PHARYNGITIS [None]
  - ILEUS [None]
